FAERS Safety Report 20044562 (Version 2)
Quarter: 2021Q4

REPORT INFORMATION
  Report Type: Report from Study
  Country: US (occurrence: US)
  Receive Date: 20211108
  Receipt Date: 20211110
  Transmission Date: 20220303
  Serious: Yes (Death, Hospitalization, Disabling, Other)
  Sender: FDA-Public Use
  Company Number: US-SA-2020SA059757

PATIENT
  Age: 95 Year
  Sex: Male

DRUGS (2)
  1. DUPILUMAB [Suspect]
     Active Substance: DUPILUMAB
     Indication: Dermatitis atopic
     Dosage: 600 MG, 1X
     Route: 058
     Dates: start: 20200220, end: 20200220
  2. DUPILUMAB [Suspect]
     Active Substance: DUPILUMAB
     Dosage: 300 MG, QOW
     Route: 058
     Dates: end: 20210306

REACTIONS (13)
  - Renal failure [Fatal]
  - Foot amputation [Unknown]
  - Transient ischaemic attack [Unknown]
  - Bedridden [Unknown]
  - Erythema [Not Recovered/Not Resolved]
  - Gangrene [Not Recovered/Not Resolved]
  - Dysphagia [Unknown]
  - Cystitis [Unknown]
  - Blood glucose increased [Unknown]
  - Urine output decreased [Unknown]
  - Impaired healing [Unknown]
  - Bladder catheterisation [Unknown]
  - Poor peripheral circulation [Unknown]

NARRATIVE: CASE EVENT DATE: 20200225
